FAERS Safety Report 9067648 (Version 3)
Quarter: 2013Q3

REPORT INFORMATION
  Report Type: Report from Study
  Country: US (occurrence: US)
  Receive Date: 20130129
  Receipt Date: 20130826
  Transmission Date: 20140515
  Serious: Yes (Hospitalization, Other)
  Sender: FDA-Public Use
  Company Number: US-ELI_LILLY_AND_COMPANY-US201111009011

PATIENT
  Age: 66 Year
  Sex: Female

DRUGS (8)
  1. TERIPARATIDE [Suspect]
     Indication: OSTEOPOROSIS
     Dosage: 20 UG, QD
     Route: 058
     Dates: start: 201112
  2. TERIPARATIDE [Suspect]
     Dosage: 20 UG, QD
     Route: 058
  3. TERIPARATIDE [Suspect]
     Dosage: 20 UG, QD
     Route: 058
  4. TERIPARATIDE [Suspect]
     Dosage: 20 UG, QD
     Route: 058
  5. TERIPARATIDE [Suspect]
     Dosage: 20 UG, QD
     Route: 058
  6. TERIPARATIDE [Suspect]
     Dosage: 20 UG, QD
     Route: 058
  7. OLANZAPINE [Concomitant]
  8. METOPROLOL [Concomitant]

REACTIONS (14)
  - Dyspnoea [Unknown]
  - Chest pain [Unknown]
  - Asthma [Unknown]
  - Oropharyngeal discomfort [Recovered/Resolved]
  - Limb injury [Unknown]
  - Pain in extremity [Unknown]
  - Blood pressure increased [Recovering/Resolving]
  - Constipation [Unknown]
  - Asthenia [Unknown]
  - Headache [Unknown]
  - Urticaria [Unknown]
  - Furuncle [Unknown]
  - Rash [Unknown]
  - Back pain [Unknown]
